FAERS Safety Report 25472260 (Version 2)
Quarter: 2025Q3

REPORT INFORMATION
  Report Type: Spontaneous
  Country: ZA (occurrence: ZA)
  Receive Date: 20250624
  Receipt Date: 20250715
  Transmission Date: 20251020
  Serious: Yes (Other)
  Sender: CIPLA
  Company Number: ZA-CIPLA LTD.-2025ZA07494

PATIENT

DRUGS (6)
  1. BUDESONIDE [Suspect]
     Active Substance: BUDESONIDE
     Indication: Asthma
     Dosage: UNK, BID (2 PUMPS MORNING AND 2 PUMPS EVENING, DAILY)
  2. BUDESONIDE [Suspect]
     Active Substance: BUDESONIDE
     Dosage: UNK, QD (DOSE REDUCED, ONLY TAKING IT ONCE)
  3. ALBUTEROL [Suspect]
     Active Substance: ALBUTEROL
     Indication: Asthma
  4. ALBUTEROL [Suspect]
     Active Substance: ALBUTEROL
  5. ALERGEX [Concomitant]
     Indication: Cough
     Dosage: 1 DOSAGE FORM, QD (THOUGHT THIS WAS RELATED TO SINUS OR ALLERGY)
     Route: 065
  6. LEVONORGESTREL [Concomitant]
     Active Substance: LEVONORGESTREL
     Indication: Endometriosis
     Dosage: 1 DOSAGE FORM, QD (DAILY)
     Route: 065

REACTIONS (17)
  - Oropharyngeal blistering [Recovering/Resolving]
  - Thirst [Unknown]
  - Blood pressure decreased [Unknown]
  - Lethargy [Unknown]
  - Dizziness [Recovering/Resolving]
  - Dry throat [Unknown]
  - Insomnia [Recovering/Resolving]
  - Dysphagia [Unknown]
  - Heart rate increased [Unknown]
  - Product residue present [Unknown]
  - Product substitution issue [Unknown]
  - Product complaint [Unknown]
  - Restlessness [Unknown]
  - Vomiting [Recovering/Resolving]
  - Cough [Recovering/Resolving]
  - Throat irritation [Unknown]
  - Oral candidiasis [Unknown]

NARRATIVE: CASE EVENT DATE: 20241001
